FAERS Safety Report 6956151-0 (Version None)
Quarter: 2010Q3

REPORT INFORMATION
  Report Type: 
  Country: None (occurrence: None)
  Receive Date: 20100830
  Receipt Date: 20100816
  Transmission Date: 20110219
  Serious: Yes (Hospitalization, Other)
  Sender: FDA-Public Use
  Company Number: PHHY2010US54485

PATIENT
  Sex: Female

DRUGS (5)
  1. FORADIL [Suspect]
     Indication: ASTHMA
     Dosage: 12 MCG DAILY
     Dates: start: 20100512, end: 20100710
  2. EFFEXOR [Concomitant]
  3. PREMARIN [Concomitant]
  4. SINGULAIR [Concomitant]
  5. ALBUTEROL [Concomitant]

REACTIONS (14)
  - COLITIS [None]
  - DRY MOUTH [None]
  - EAR DISCOMFORT [None]
  - EATING DISORDER [None]
  - EYE SWELLING [None]
  - FATIGUE [None]
  - JAW DISORDER [None]
  - ORAL DISCOMFORT [None]
  - ORAL PAIN [None]
  - OROPHARYNGEAL PAIN [None]
  - PAIN IN JAW [None]
  - SWELLING FACE [None]
  - SWOLLEN TONGUE [None]
  - TONGUE BITING [None]
